FAERS Safety Report 8586038-1 (Version None)
Quarter: 2012Q3

REPORT INFORMATION
  Report Type: 
  Country: None (occurrence: None)
  Receive Date: 20120810
  Receipt Date: 20120809
  Transmission Date: 20120928
  Serious: Yes (Hospitalization)
  Sender: FDA-Public Use
  Company Number: IT-PFIZER INC-2011133144

PATIENT
  Age: 81 Year
  Sex: Male

DRUGS (3)
  1. SUTENT [Suspect]
     Indication: RENAL CANCER
     Dosage: 37.5 MG, 1X/DAY
     Route: 048
     Dates: start: 20081001, end: 20091101
  2. IRBESARTAN [Concomitant]
     Dosage: 150 MG, UNK
     Route: 048
  3. NORVASC [Concomitant]
     Dosage: 10 MG, UNK
     Route: 048

REACTIONS (3)
  - NEPHROTIC SYNDROME [None]
  - HYPOTHYROIDISM [None]
  - GENERALISED OEDEMA [None]
